FAERS Safety Report 4434401-2 (Version None)
Quarter: 2004Q3

REPORT INFORMATION
  Report Type: 
  Country: None (occurrence: None)
  Receive Date: 20040825
  Receipt Date: 20040810
  Transmission Date: 20050211
  Serious: Yes (Death)
  Sender: FDA-Public Use
  Company Number: 04P-163-0269920-00

PATIENT
  Age: 94 Year
  Sex: Male

DRUGS (4)
  1. HYTRIN [Suspect]
     Indication: POLLAKIURIA
     Dosage: 5 MG , 1 IN 1 D, PER ORAL
     Route: 048
     Dates: start: 19990101
  2. LOSARTAN POTASSIUM [Concomitant]
  3. FUROSEMIDE [Concomitant]
  4. ASPIRIN [Concomitant]

REACTIONS (1)
  - MYOCARDIAL INFARCTION [None]
